FAERS Safety Report 18454808 (Version 1)
Quarter: 2020Q4

REPORT INFORMATION
  Report Type: Spontaneous
  Country: US (occurrence: US)
  Receive Date: 20201103
  Receipt Date: 20201103
  Transmission Date: 20210114
  Serious: No
  Sender: FDA-Public Use
  Company Number: US-SA-2020SA306093

PATIENT

DRUGS (1)
  1. DUPIXENT [Suspect]
     Active Substance: DUPILUMAB
     Indication: DERMATITIS ATOPIC
     Dosage: 300 MG; EVERY OTHER
     Route: 058
     Dates: start: 20200705

REACTIONS (4)
  - Neovascularisation [Unknown]
  - Condition aggravated [Unknown]
  - Visual impairment [Unknown]
  - Eye inflammation [Unknown]

NARRATIVE: CASE EVENT DATE: 2020
